FAERS Safety Report 21311476 (Version 1)
Quarter: 2022Q3

REPORT INFORMATION
  Report Type: Spontaneous
  Country: FR (occurrence: FR)
  Receive Date: 20220909
  Receipt Date: 20220909
  Transmission Date: 20221027
  Serious: Yes (Other)
  Sender: FDA-Public Use
  Company Number: None

PATIENT
  Age: 28 Year
  Sex: Female

DRUGS (6)
  1. ZOPICLONE [Suspect]
     Active Substance: ZOPICLONE
     Indication: Insomnia
     Dosage: 7.5 MILLIGRAM DAILY; THE EVENING; THERAPY END DATE : NASK
     Dates: start: 20220810
  2. TRAMADOL [Suspect]
     Active Substance: TRAMADOL
     Indication: Pain
     Dosage: TRAMADOL HYDROCHLORIDE;
  3. ALPRAZOLAM [Suspect]
     Active Substance: ALPRAZOLAM
     Indication: Anxiety
     Dosage: .75 MILLIGRAM DAILY; 0.25 MG 3/D; THERAPY END DATE : NASK
     Dates: start: 20220810
  4. SERTRALINE HYDROCHLORIDE [Suspect]
     Active Substance: SERTRALINE HYDROCHLORIDE
     Indication: Depression
     Dosage: 1 DOSAGE FORMS DAILY; 1 CAPSULE IN THE MORNING; THERAPY END DATE : NASK, SERTRALINE ARROW 50 MG CAPS
     Dates: start: 20220812
  5. DESOGESTREL [Suspect]
     Active Substance: DESOGESTREL
     Indication: Contraception
     Dosage: 1 DOSAGE FORMS DAILY; TAKEN IN THE MORNING; CLAREAL 0.075 MG FILM-COATED TABLETS
  6. RELPAX [Suspect]
     Active Substance: ELETRIPTAN HYDROBROMIDE
     Indication: Migraine
     Dosage: RELPAX 40 MG FILM-COATED TABLETS

REACTIONS (2)
  - Toxic skin eruption [Recovering/Resolving]
  - Pruritus [Recovering/Resolving]

NARRATIVE: CASE EVENT DATE: 20220816
